FAERS Safety Report 26137871 (Version 1)
Quarter: 2025Q4

REPORT INFORMATION
  Report Type: Spontaneous
  Country: GB (occurrence: GB)
  Receive Date: 20251210
  Receipt Date: 20251210
  Transmission Date: 20260117
  Serious: Yes (Other)
  Sender: ALKEM
  Company Number: None

PATIENT
  Sex: Female

DRUGS (1)
  1. MYCOPHENOLATE MOFETIL [Suspect]
     Active Substance: MYCOPHENOLATE MOFETIL
     Indication: Product used for unknown indication
     Dosage: UNK
     Route: 065

REACTIONS (9)
  - Asthma [Unknown]
  - Depression [Unknown]
  - Pruritus [Unknown]
  - Fatigue [Unknown]
  - Mood altered [Unknown]
  - Anger [Unknown]
  - Bladder pain [Unknown]
  - Paraesthesia [Unknown]
  - Insomnia [Unknown]
